FAERS Safety Report 21635827 (Version 2)
Quarter: 2023Q1

REPORT INFORMATION
  Report Type: Spontaneous
  Country: US (occurrence: US)
  Receive Date: 20221123
  Receipt Date: 20230216
  Transmission Date: 20230417
  Serious: Yes (Hospitalization, Other)
  Sender: FDA-Public Use
  Company Number: US-BAYER-2022P022073

PATIENT
  Age: 77 Year
  Sex: Female
  Weight: 50.349 kg

DRUGS (7)
  1. XARELTO [Suspect]
     Active Substance: RIVAROXABAN
     Indication: Product used for unknown indication
     Route: 048
  2. RIOCIGUAT [Suspect]
     Active Substance: RIOCIGUAT
     Indication: Pulmonary arterial hypertension
     Dosage: UNK
     Dates: start: 20220217
  3. RIOCIGUAT [Suspect]
     Active Substance: RIOCIGUAT
     Indication: Pulmonary arterial hypertension
     Dosage: 1.5 MG, TID
     Route: 048
  4. RIOCIGUAT [Suspect]
     Active Substance: RIOCIGUAT
     Indication: Pulmonary arterial hypertension
     Dosage: 1.5 MG, TID
     Route: 048
  5. IRON [Suspect]
     Active Substance: IRON
  6. TYVASO [Concomitant]
     Active Substance: TREPROSTINIL
  7. OPSUMIT [Concomitant]
     Active Substance: MACITENTAN

REACTIONS (9)
  - Haemorrhage [Unknown]
  - Allergic transfusion reaction [Unknown]
  - Feeding disorder [Unknown]
  - COVID-19 [Unknown]
  - Pruritus [Unknown]
  - Influenza like illness [Unknown]
  - Drug hypersensitivity [Unknown]
  - Dizziness [Unknown]
  - Blood pressure decreased [Unknown]
